FAERS Safety Report 12842546 (Version 1)
Quarter: 2016Q4

REPORT INFORMATION
  Report Type: Spontaneous
  Country: US (occurrence: US)
  Receive Date: 20161013
  Receipt Date: 20161013
  Transmission Date: 20170207
  Serious: No
  Sender: FDA-Public Use
  Company Number: US-TAKEDA-2016TUS017499

PATIENT

DRUGS (1)
  1. ULORIC [Suspect]
     Active Substance: FEBUXOSTAT
     Indication: PRODUCT USED FOR UNKNOWN INDICATION
     Dosage: 80 MG, UNK
     Route: 065
     Dates: start: 20160826

REACTIONS (6)
  - Skin exfoliation [Unknown]
  - Skin wrinkling [Unknown]
  - Rash [Unknown]
  - Throat irritation [Unknown]
  - Pruritus [Unknown]
  - Urticaria [Unknown]
